FAERS Safety Report 5739329-3 (Version None)
Quarter: 2008Q2

REPORT INFORMATION
  Report Type: 
  Country: None (occurrence: None)
  Receive Date: 20080512
  Receipt Date: 20080512
  Transmission Date: 20081010
  Serious: Yes (Hospitalization)
  Sender: FDA-Public Use
  Company Number: None

PATIENT
  Sex: Female
  Weight: 45.8 kg

DRUGS (1)
  1. CISPLATIN [Suspect]
     Dosage: 81 MG
     Dates: end: 20080116

REACTIONS (5)
  - CACHEXIA [None]
  - GASTROSTOMY TUBE INSERTION [None]
  - PROCEDURAL PAIN [None]
  - STOMATITIS [None]
  - TONSIL CANCER [None]
